FAERS Safety Report 5879151-0 (Version None)
Quarter: 2008Q3

REPORT INFORMATION
  Report Type: 
  Country: None (occurrence: None)
  Receive Date: 20080912
  Receipt Date: 20080911
  Transmission Date: 20090109
  Serious: Yes (Death, Life-Threatening)
  Sender: FDA-Public Use
  Company Number: JP-BRISTOL-MYERS SQUIBB COMPANY-14332886

PATIENT
  Age: 71 Year
  Sex: Male
  Weight: 58 kg

DRUGS (5)
  1. CISPLATIN [Suspect]
     Indication: PLEURAL MESOTHELIOMA MALIGNANT
     Dosage: STARTED ON 16-OCT-2007
     Route: 042
     Dates: start: 20071113, end: 20071113
  2. PEMETREXED DISODIUM [Suspect]
     Indication: PLEURAL MESOTHELIOMA MALIGNANT
     Dosage: STARTED ON 16-OCT-2007
     Route: 042
     Dates: start: 20071113, end: 20071113
  3. KYTRIL [Concomitant]
     Dates: start: 20071113, end: 20071117
  4. PANVITAN [Concomitant]
     Dates: start: 20070829
  5. CYANOCOBALAMIN [Concomitant]
     Dates: start: 20070829, end: 20070829

REACTIONS (4)
  - DISEASE PROGRESSION [None]
  - DISSEMINATED INTRAVASCULAR COAGULATION [None]
  - LARGE INTESTINE PERFORATION [None]
  - SEPSIS [None]
